FAERS Safety Report 9448082 (Version 1)
Quarter: 2013Q3

REPORT INFORMATION
  Report Type: Spontaneous
  Country: JP (occurrence: JP)
  Receive Date: 20130808
  Receipt Date: 20130808
  Transmission Date: 20140515
  Serious: Yes (Death, Hospitalization)
  Sender: FDA-Public Use
  Company Number: JP-BAYER-2013-072310

PATIENT
  Age: 67 Year
  Sex: Male
  Weight: 49.89 kg

DRUGS (7)
  1. STIVARGA [Suspect]
     Indication: COLORECTAL CANCER
     Dosage: DAILY DOSE 120 MG
     Route: 048
     Dates: start: 20130529, end: 20130618
  2. STIVARGA [Suspect]
     Indication: COLORECTAL CANCER
     Dosage: DAILY DOSE 120 MG
     Route: 048
     Dates: start: 20130626, end: 20130703
  3. NAIXAN [Concomitant]
     Indication: COLON CANCER
     Dosage: DAILY DOSE 600 MG
     Route: 048
  4. MUCOSTA [Concomitant]
     Indication: COLON CANCER
     Dosage: DAILY DOSE 300 MG
     Route: 048
  5. DEPAS [Concomitant]
     Indication: COLON CANCER
     Dosage: DAILY DOSE 1.5 MG
     Route: 048
  6. MAGMITT [Concomitant]
     Indication: COLON CANCER
     Dosage: DAILY DOSE 990 MG
     Route: 048
  7. HIRUDOID [Concomitant]
     Indication: DRUG TOXICITY PROPHYLAXIS
     Dosage: UNK
     Route: 061
     Dates: start: 20130529

REACTIONS (3)
  - Colon cancer [Fatal]
  - Hepatic function abnormal [Not Recovered/Not Resolved]
  - Rash [Not Recovered/Not Resolved]
